FAERS Safety Report 9240226 (Version 2)
Quarter: 2013Q2

REPORT INFORMATION
  Report Type: Spontaneous
  Country: None (occurrence: None)
  Receive Date: 20130417
  Receipt Date: 20130503
  Transmission Date: 20140414
  Serious: Yes (Other)
  Sender: FDA-Public Use
  Company Number: 2013/089

PATIENT
  Sex: 0

DRUGS (1)
  1. AMLODIPINE (NO PREF. NAME) 5 MG [Suspect]
     Route: 048

REACTIONS (5)
  - Suicidal ideation [None]
  - Oedema peripheral [None]
  - Oedema peripheral [None]
  - Rash [None]
  - Malaise [None]
